FAERS Safety Report 5105111-3 (Version None)
Quarter: 2006Q3

REPORT INFORMATION
  Report Type: 
  Country: None (occurrence: None)
  Receive Date: 20060911
  Receipt Date: 20060830
  Transmission Date: 20061208
  Serious: Yes (Other)
  Sender: FDA-Public Use
  Company Number: 2006105726

PATIENT
  Age: 71 Year
  Sex: Male
  Weight: 70.7611 kg

DRUGS (5)
  1. XALATAN [Suspect]
     Indication: GLAUCOMA
     Dosage: 2 DROP (1 DROP, EACH DAY AT NIGHT), OPHTHALMIC
     Route: 047
  2. OMEPRAZOLE [Concomitant]
  3. DIGOXIN [Concomitant]
  4. ZEBETA [Concomitant]
  5. WARFARIN SODIUM [Concomitant]

REACTIONS (8)
  - BLOOD CHLORIDE DECREASED [None]
  - BLOOD CHOLESTEROL INCREASED [None]
  - BLOOD POTASSIUM INCREASED [None]
  - BLOOD SODIUM DECREASED [None]
  - CATARACT [None]
  - HIGH DENSITY LIPOPROTEIN INCREASED [None]
  - VISION BLURRED [None]
  - VITREOUS FLOATERS [None]
